FAERS Safety Report 11308187 (Version 2)
Quarter: 2015Q3

REPORT INFORMATION
  Report Type: Spontaneous
  Country: US (occurrence: US)
  Receive Date: 20150724
  Receipt Date: 20150911
  Transmission Date: 20151125
  Serious: No
  Sender: FDA-Public Use
  Company Number: US-BAYER-2015-379259

PATIENT
  Sex: Female

DRUGS (16)
  1. NIFEDIPINE. [Suspect]
     Active Substance: NIFEDIPINE
     Indication: TOCOLYSIS
     Dosage: 20 MG, QID
     Route: 048
  2. ZEMURON [Suspect]
     Active Substance: ROCURONIUM BROMIDE
     Indication: PARALYSIS
     Dosage: UNK
  3. REMIFENTANIL HYDROCHLORIDE [Suspect]
     Active Substance: REMIFENTANIL HYDROCHLORIDE
     Indication: ANAESTHESIA
     Dosage: UNK
     Route: 042
  4. FENTANYL. [Suspect]
     Active Substance: FENTANYL
     Indication: ANALGESIC THERAPY
  5. DESFLURANE. [Suspect]
     Active Substance: DESFLURANE
     Indication: ANAESTHESIA
     Dosage: UNK
     Route: 055
  6. FENTANYL. [Suspect]
     Active Substance: FENTANYL
     Indication: PARALYSIS
     Dosage: UNK
     Route: 030
  7. ZEMURON [Suspect]
     Active Substance: ROCURONIUM BROMIDE
     Indication: ANALGESIC THERAPY
  8. INDOMETHACIN. [Suspect]
     Active Substance: INDOMETHACIN
     Dosage: 50 MG, QD
     Route: 048
  9. MAGNESIUM [Suspect]
     Active Substance: MAGNESIUM
     Dosage: UNK
  10. SUCCINYLDICHOLINE CHLORIDE [Suspect]
     Active Substance: SUCCINYLCHOLINE CHLORIDE
     Indication: ANAESTHESIA
     Dosage: UNK
  11. ATROPINE. [Suspect]
     Active Substance: ATROPINE
     Indication: PARALYSIS
     Dosage: UNK
  12. PROPOFOL. [Suspect]
     Active Substance: PROPOFOL
     Indication: ANAESTHESIA
     Dosage: UNK
     Route: 042
  13. ATROPINE. [Suspect]
     Active Substance: ATROPINE
     Indication: ANALGESIC THERAPY
  14. INDOMETHACIN. [Suspect]
     Active Substance: INDOMETHACIN
     Dosage: 25 MG, UNK
     Route: 048
  15. INDOMETHACIN. [Suspect]
     Active Substance: INDOMETHACIN
     Dosage: 25 MG, QID
     Route: 048
  16. PHENYLEPHRINE HYDROCHLORIDE. [Suspect]
     Active Substance: PHENYLEPHRINE HYDROCHLORIDE
     Indication: BLOOD PRESSURE ABNORMAL
     Dosage: UNK

REACTIONS (1)
  - Maternal exposure during pregnancy [Unknown]
